FAERS Safety Report 6222372-8 (Version None)
Quarter: 2009Q2

REPORT INFORMATION
  Report Type: 
  Country: None (occurrence: None)
  Receive Date: 20090611
  Receipt Date: 20090522
  Transmission Date: 20091009
  Serious: Yes (Other)
  Sender: FDA-Public Use
  Company Number: US-GENENTECH-283915

PATIENT
  Sex: Female

DRUGS (3)
  1. HERCEPTIN [Suspect]
     Indication: OVARIAN CANCER RECURRENT
     Dosage: UNK
  2. TAXOL [Concomitant]
     Indication: OVARIAN CANCER RECURRENT
     Dosage: UNK
  3. CARBOPLATIN [Concomitant]
     Indication: OVARIAN CANCER RECURRENT
     Dosage: UNK

REACTIONS (1)
  - BONE LESION [None]
